FAERS Safety Report 10028626 (Version 13)
Quarter: 2015Q4

REPORT INFORMATION
  Report Type: Spontaneous
  Country: US (occurrence: US)
  Receive Date: 20140321
  Receipt Date: 20151026
  Transmission Date: 20160304
  Serious: No
  Sender: FDA-Public Use
  Company Number: US-PFIZER INC-2014080686

PATIENT
  Age: 64 Year
  Sex: Female
  Weight: 72.11 kg

DRUGS (7)
  1. ALPRAZOLAM. [Suspect]
     Active Substance: ALPRAZOLAM
     Indication: ANXIETY
     Dosage: 1 MG, TWO TIMES A DAY
     Route: 048
     Dates: start: 201403
  2. LITHIUM CARBONATE. [Concomitant]
     Active Substance: LITHIUM CARBONATE
     Dosage: UNK
  3. HYDROCHLOROTHIAZIDE/TRIAMTERENE [Concomitant]
     Dosage: TRIAMTERENE 37.5/HYDROCHLOROTHIAZIDE 25, 1X/DAY
  4. ESTRADIOL. [Concomitant]
     Active Substance: ESTRADIOL
     Dosage: 7.5 MG, EVERY 3 WEEKS
  5. NORVASC [Concomitant]
     Active Substance: AMLODIPINE BESYLATE
     Dosage: 2.5 MG, 1X/DAY
     Dates: start: 2004
  6. ALPRAZOLAM. [Suspect]
     Active Substance: ALPRAZOLAM
     Indication: STRESS
     Dosage: 1 MG, THREE TIMES A DAY
     Route: 048
     Dates: start: 2004
  7. NORVASC [Concomitant]
     Active Substance: AMLODIPINE BESYLATE
     Indication: BLOOD PRESSURE ABNORMAL
     Dosage: 2.5 MG, 2X/DAY
     Dates: start: 2004, end: 2004

REACTIONS (13)
  - Product tampering [Unknown]
  - Weight decreased [Unknown]
  - Product taste abnormal [Unknown]
  - Restlessness [Unknown]
  - Malaise [Unknown]
  - Back pain [Unknown]
  - Renal disorder [Unknown]
  - Delusion [Unknown]
  - Nervous system disorder [Unknown]
  - Product physical issue [Unknown]
  - Tooth erosion [Unknown]
  - Feeling abnormal [Unknown]
  - Drug ineffective [Unknown]

NARRATIVE: CASE EVENT DATE: 20140302
